FAERS Safety Report 9602170 (Version 1)
Quarter: 2013Q4

REPORT INFORMATION
  Report Type: Spontaneous
  Country: GB (occurrence: None)
  Receive Date: 20131003
  Receipt Date: 20131003
  Transmission Date: 20140711
  Serious: Yes (Hospitalization, Other)
  Sender: FDA-Public Use
  Company Number: GB-ALKEM-000173

PATIENT
  Age: 86 Year
  Sex: Female

DRUGS (1)
  1. CEPHALEXIN [Suspect]
     Indication: LOWER RESPIRATORY TRACT INFECTION
     Dates: start: 20121016, end: 20121018

REACTIONS (2)
  - Pneumonia [None]
  - Treatment failure [None]
